FAERS Safety Report 23831875 (Version 1)
Quarter: 2024Q2

REPORT INFORMATION
  Report Type: Spontaneous
  Country: CN (occurrence: None)
  Receive Date: 20240508
  Receipt Date: 20240508
  Transmission Date: 20240716
  Serious: Yes (Other)
  Sender: FDA-Public Use
  Company Number: 2024A105598

PATIENT
  Age: 3475 Week
  Sex: Female
  Weight: 65 kg

DRUGS (2)
  1. TAGRISSO [Suspect]
     Active Substance: OSIMERTINIB
     Indication: Lung adenocarcinoma
     Route: 048
     Dates: start: 20210316, end: 20240423
  2. TAGRISSO [Suspect]
     Active Substance: OSIMERTINIB
     Indication: Targeted cancer therapy
     Route: 048
     Dates: start: 20210316, end: 20240423

REACTIONS (1)
  - Liver injury [Unknown]

NARRATIVE: CASE EVENT DATE: 20240422
